FAERS Safety Report 18753506 (Version 1)
Quarter: 2021Q1

REPORT INFORMATION
  Report Type: Other
  Country: CO (occurrence: CO)
  Receive Date: 20210118
  Receipt Date: 20210118
  Transmission Date: 20210419
  Serious: Yes (Other)
  Sender: FDA-Public Use
  Company Number: CO-VITRUVIAS THERAPEUTICS-2105488

PATIENT
  Age: 56 Year
  Sex: Male

DRUGS (1)
  1. CYANOCOBALAMIN. [Suspect]
     Active Substance: CYANOCOBALAMIN
     Route: 030

REACTIONS (1)
  - Autoimmune haemolytic anaemia [Recovering/Resolving]
